FAERS Safety Report 20554819 (Version 1)
Quarter: 2022Q1

REPORT INFORMATION
  Report Type: Spontaneous
  Country: US (occurrence: None)
  Receive Date: 20220304
  Receipt Date: 20220304
  Transmission Date: 20220423
  Serious: Yes (Other)
  Sender: FDA-Public Use
  Company Number: None

PATIENT
  Sex: Female

DRUGS (2)
  1. POLYETHYLENE GLYCOL [Suspect]
     Active Substance: POLYETHYLENE GLYCOL
     Indication: Irritable bowel syndrome
  2. PLECANATIDE [Suspect]
     Active Substance: PLECANATIDE
     Indication: Irritable bowel syndrome

REACTIONS (1)
  - Drug ineffective [None]
